FAERS Safety Report 8274672-8 (Version None)
Quarter: 2012Q2

REPORT INFORMATION
  Report Type: 
  Country: None (occurrence: None)
  Receive Date: 20120411
  Receipt Date: 20120404
  Transmission Date: 20120825
  Serious: Yes (Hospitalization)
  Sender: FDA-Public Use
  Company Number: JP-GLAXOSMITHKLINE-B0794097A

PATIENT
  Age: 39 Year
  Sex: Female

DRUGS (9)
  1. TASMOLIN [Concomitant]
     Dosage: 2MG PER DAY
     Route: 048
     Dates: start: 20111017
  2. STEROIDS [Concomitant]
  3. LAMICTAL [Suspect]
     Route: 048
     Dates: start: 20111020, end: 20111111
  4. DESYREL [Concomitant]
     Dosage: 50MG PER DAY
     Route: 048
     Dates: start: 20111020
  5. LAMICTAL [Suspect]
     Indication: PRODUCT USED FOR UNKNOWN INDICATION
     Route: 048
     Dates: start: 20111017, end: 20111019
  6. NITRAZEPAM [Concomitant]
     Dosage: 10MG PER DAY
     Route: 048
     Dates: start: 20111017
  7. DIAZEPAM [Concomitant]
     Dosage: 5MG PER DAY
     Route: 048
     Dates: start: 20111017
  8. LENDORMIN [Concomitant]
     Dosage: .5MG PER DAY
     Route: 048
     Dates: start: 20111017
  9. RISPERDAL [Concomitant]
     Dosage: 2MG PER DAY
     Route: 048
     Dates: start: 20111017

REACTIONS (9)
  - PYREXIA [None]
  - DRUG RASH WITH EOSINOPHILIA AND SYSTEMIC SYMPTOMS [None]
  - INSOMNIA [None]
  - DRUG ERUPTION [None]
  - SCAR [None]
  - ALOPECIA [None]
  - STRESS [None]
  - RASH GENERALISED [None]
  - FEELING ABNORMAL [None]
